FAERS Safety Report 5973863-6 (Version None)
Quarter: 2008Q4

REPORT INFORMATION
  Report Type: 
  Country: None (occurrence: None)
  Receive Date: 20081201
  Receipt Date: 20080108
  Transmission Date: 20090506
  Serious: Yes (Hospitalization, Other)
  Sender: FDA-Public Use
  Company Number: US-AMGEN-QUU245159

PATIENT
  Sex: Female
  Weight: 106.7 kg

DRUGS (12)
  1. ENBREL [Suspect]
     Indication: PSORIATIC ARTHROPATHY
     Route: 058
     Dates: start: 20060501
  2. RAPTIVA [Suspect]
     Dates: start: 20070301, end: 20070901
  3. SYNTHROID [Concomitant]
  4. DIOVAN [Concomitant]
  5. BUMEX [Concomitant]
  6. K-DUR [Concomitant]
  7. LYRICA [Concomitant]
  8. ARTHROTEC [Concomitant]
  9. CELEXA [Concomitant]
  10. KLONOPIN [Concomitant]
  11. IMITREX [Concomitant]
  12. LIPITOR [Concomitant]

REACTIONS (3)
  - BREAST CANCER IN SITU [None]
  - CELLULITIS [None]
  - STAPHYLOCOCCAL INFECTION [None]
